FAERS Safety Report 8439851-5 (Version None)
Quarter: 2012Q2

REPORT INFORMATION
  Report Type: 
  Country: None (occurrence: None)
  Receive Date: 20120611
  Receipt Date: 20120611
  Transmission Date: 20120825
  Serious: Yes (Other)
  Sender: FDA-Public Use
  Company Number: None

PATIENT
  Sex: Female

DRUGS (2)
  1. ZOLPIDEM [Suspect]
     Indication: INSOMNIA
     Dosage: 5 MG, 1 A NIGHT, PO
     Route: 048
     Dates: start: 20120607, end: 20120608
  2. ZOLPIDEM [Suspect]
     Indication: MENOPAUSE
     Dosage: 5 MG, 1 A NIGHT, PO
     Route: 048
     Dates: start: 20120607, end: 20120608

REACTIONS (5)
  - SWOLLEN TONGUE [None]
  - ULCER [None]
  - CHOKING [None]
  - LIP SWELLING [None]
  - AMNESIA [None]
